FAERS Safety Report 8130608-1 (Version None)
Quarter: 2012Q1

REPORT INFORMATION
  Report Type: 
  Country: None (occurrence: None)
  Receive Date: 20120213
  Receipt Date: 20120202
  Transmission Date: 20120608
  Serious: Yes (Hospitalization)
  Sender: FDA-Public Use
  Company Number: DE-BIOGENIDEC-2010BI018107

PATIENT
  Age: 58 Year
  Sex: Female
  Weight: 81 kg

DRUGS (10)
  1. PANTOPRAZOLE [Concomitant]
     Indication: GASTRITIS
  2. MUSCLE RELAXANTS (NOS) [Concomitant]
  3. ORTOTON [Concomitant]
     Indication: MUSCLE SPASTICITY
  4. AMITRIPTYLINE HCL [Concomitant]
     Indication: NEURALGIA
  5. METOPROLOL TARTRATE [Concomitant]
     Indication: HYPERTONIA
  6. BACLOFEN [Concomitant]
     Indication: MUSCLE SPASTICITY
  7. TYSABRI [Suspect]
     Indication: MULTIPLE SCLEROSIS
     Route: 042
     Dates: start: 20070511
  8. ANTACIDS (NOS) [Concomitant]
  9. MULTI-VITAMINS [Concomitant]
  10. PANTOPRAZOLE [Concomitant]
     Indication: GASTRIC ULCER

REACTIONS (2)
  - VENOUS THROMBOSIS [None]
  - THROMBOSIS [None]
